FAERS Safety Report 7652275-3 (Version None)
Quarter: 2011Q3

REPORT INFORMATION
  Report Type: 
  Country: None (occurrence: None)
  Receive Date: 20110728
  Receipt Date: 20110715
  Transmission Date: 20111222
  Serious: Yes (Other)
  Sender: FDA-Public Use
  Company Number: US-2011-1640

PATIENT
  Age: 58 Year
  Sex: Female

DRUGS (5)
  1. NAVELBINE [Suspect]
  2. CISPLATIN [Concomitant]
  3. DECADRON [Concomitant]
  4. NAVELBINE [Suspect]
     Indication: NON-SMALL CELL LUNG CANCER
     Dosage: 50 MG 1 X WK IV
     Route: 042
     Dates: start: 20110603, end: 20110617
  5. NAVELBINE [Suspect]
     Indication: NON-SMALL CELL LUNG CANCER
     Dosage: 50 MG 1 X WK IV
     Route: 042
     Dates: start: 20110627

REACTIONS (8)
  - CHEST DISCOMFORT [None]
  - FEELING COLD [None]
  - CHEST PAIN [None]
  - OROPHARYNGEAL PAIN [None]
  - ABDOMINAL PAIN [None]
  - NEUTROPENIA [None]
  - URINARY INCONTINENCE [None]
  - INFUSION RELATED REACTION [None]
